FAERS Safety Report 14646572 (Version 3)
Quarter: 2018Q1

REPORT INFORMATION
  Report Type: Spontaneous
  Country: ME (occurrence: ME)
  Receive Date: 20180316
  Receipt Date: 20180316
  Transmission Date: 20180509
  Serious: Yes (Other)
  Sender: FDA-Public Use
  Company Number: PHHY2018ME040578

PATIENT
  Age: 56 Year
  Sex: Female

DRUGS (1)
  1. DICLOFENAC [Suspect]
     Active Substance: DICLOFENAC
     Indication: BACK PAIN
     Dosage: 200 MG QD SLOW-RELEASE, FOR OVER 7 YEARS
     Route: 065

REACTIONS (2)
  - Gastrointestinal disorder [Unknown]
  - Overdose [Unknown]
